FAERS Safety Report 9744606 (Version 3)
Quarter: 2014Q1

REPORT INFORMATION
  Report Type: Spontaneous
  Country: IT (occurrence: IT)
  Receive Date: 20131210
  Receipt Date: 20140107
  Transmission Date: 20141002
  Serious: Yes (Hospitalization)
  Sender: FDA-Public Use
  Company Number: IT-ABBVIE-13P-083-1177842-00

PATIENT
  Age: 28 Year
  Sex: Female

DRUGS (3)
  1. DEPAKINE CHRONO [Suspect]
     Indication: DRUG ABUSE
     Dosage: EXTENDED RELEASE, 120 DOSAGE FORM; TOTAL
     Route: 048
  2. OLANZAPINE [Suspect]
     Indication: DRUG ABUSE
     Dosage: UNKNOWN; TOTAL
     Route: 048
  3. CLONAZEPAM [Suspect]
     Indication: DRUG ABUSE
     Dosage: 10 MILLILITRE(S);TOTAL
     Route: 048

REACTIONS (2)
  - Coma [Unknown]
  - Drug abuse [Unknown]
